FAERS Safety Report 17166196 (Version 1)
Quarter: 2019Q4

REPORT INFORMATION
  Report Type: Spontaneous
  Country: CA (occurrence: CA)
  Receive Date: 20191217
  Receipt Date: 20191217
  Transmission Date: 20200122
  Serious: Yes (Disabling)
  Sender: FDA-Public Use
  Company Number: None

PATIENT
  Age: 69 Year
  Sex: Female
  Weight: 57.6 kg

DRUGS (4)
  1. VITAMIN D, B12, K [Concomitant]
  2. MAGNESIUM [Concomitant]
     Active Substance: MAGNESIUM
  3. BIOTINE [Concomitant]
  4. PROLIA [Suspect]
     Active Substance: DENOSUMAB

REACTIONS (9)
  - Pruritus [None]
  - Depression [None]
  - Arthralgia [None]
  - Chest discomfort [None]
  - Pain in extremity [None]
  - Dyspnoea [None]
  - Urinary tract infection [None]
  - Alopecia [None]
  - Myocardial infarction [None]

NARRATIVE: CASE EVENT DATE: 20190601
